FAERS Safety Report 9614040 (Version 2)
Quarter: 2013Q4

REPORT INFORMATION
  Report Type: Report from Study
  Country: US (occurrence: US)
  Receive Date: 20131011
  Receipt Date: 20131019
  Transmission Date: 20140711
  Serious: Yes (Death)
  Sender: FDA-Public Use
  Company Number: US-ROCHE-1287858

PATIENT
  Age: 61 Year
  Sex: Female

DRUGS (7)
  1. AVASTIN [Suspect]
     Indication: LUNG ADENOCARCINOMA
     Route: 065
  2. MORPHINE [Concomitant]
  3. VITAMIN B COMPLEX [Concomitant]
  4. VITAMIN C [Concomitant]
  5. DILTIAZEM [Concomitant]
  6. FOLIC ACID [Concomitant]
  7. ALIMTA [Concomitant]

REACTIONS (1)
  - Lung neoplasm malignant [Fatal]
